FAERS Safety Report 23902309 (Version 1)
Quarter: 2024Q2

REPORT INFORMATION
  Report Type: Spontaneous
  Country: US (occurrence: None)
  Receive Date: 20240527
  Receipt Date: 20240527
  Transmission Date: 20240716
  Serious: No
  Sender: FDA-Public Use
  Company Number: US-ROCHE-3364668

PATIENT
  Age: 69 Year
  Sex: Female
  Weight: 99.88 kg

DRUGS (3)
  1. ACTEMRA [Suspect]
     Active Substance: TOCILIZUMAB
     Indication: Rheumatoid arthritis
     Route: 058
     Dates: start: 20221202, end: 20230607
  2. ACTEMRA [Suspect]
     Active Substance: TOCILIZUMAB
  3. DORZOLAMIDE\TIMOLOL [Concomitant]
     Active Substance: DORZOLAMIDE\TIMOLOL
     Indication: Glaucoma
     Route: 031

REACTIONS (5)
  - Accidental exposure to product [Unknown]
  - Product dose omission issue [Unknown]
  - Drug delivery system malfunction [Unknown]
  - No adverse event [Unknown]
  - Device malfunction [Unknown]

NARRATIVE: CASE EVENT DATE: 20230607
